FAERS Safety Report 8014219-4 (Version None)
Quarter: 2011Q4

REPORT INFORMATION
  Report Type: 
  Country: None (occurrence: None)
  Receive Date: 20111229
  Receipt Date: 20110623
  Transmission Date: 20120403
  Serious: Yes (Other)
  Sender: FDA-Public Use
  Company Number: US-GLAXOSMITHKLINE-A0934375A

PATIENT
  Age: 51 Year
  Sex: Male

DRUGS (1)
  1. AVANDIA [Suspect]
     Indication: DIABETES MELLITUS
     Dosage: 4MG PER DAY
     Route: 048
     Dates: start: 20010801

REACTIONS (4)
  - CARDIAC FAILURE CONGESTIVE [None]
  - VENTRICULAR HYPOKINESIA [None]
  - ISCHAEMIA [None]
  - CONDITION AGGRAVATED [None]
